FAERS Safety Report 4293338-2 (Version None)
Quarter: 2004Q1

REPORT INFORMATION
  Report Type: 
  Country: None (occurrence: None)
  Receive Date: 20040210
  Receipt Date: 20040128
  Transmission Date: 20041129
  Serious: Yes (Other)
  Sender: FDA-Public Use
  Company Number: ZONI001313

PATIENT
  Age: 36 Year
  Sex: Male

DRUGS (1)
  1. ZONEGRAN [Suspect]
     Indication: COMPLEX PARTIAL SEIZURES
     Dosage: 400 MG DAILY ORAL
     Route: 048
     Dates: start: 20030401, end: 20030913

REACTIONS (5)
  - AGGRESSION [None]
  - DEPRESSION [None]
  - MOOD ALTERED [None]
  - PERSONALITY CHANGE [None]
  - WEIGHT DECREASED [None]
